FAERS Safety Report 13507207 (Version 1)
Quarter: 2017Q2

REPORT INFORMATION
  Report Type: Spontaneous
  Country: US (occurrence: US)
  Receive Date: 20170503
  Receipt Date: 20170503
  Transmission Date: 20170830
  Serious: No
  Sender: FDA-Public Use
  Company Number: US-TEVA-743228ACC

PATIENT
  Age: 34 Year
  Sex: Female

DRUGS (1)
  1. HYDROCODONE/IBUPROFEN [Suspect]
     Active Substance: HYDROCODONE\IBUPROFEN
     Dosage: DOSE STRENGTH: 7.5/200MG

REACTIONS (1)
  - Laboratory test abnormal [Unknown]
